FAERS Safety Report 5277780-9 (Version None)
Quarter: 2007Q1

REPORT INFORMATION
  Report Type: 
  Country: None (occurrence: None)
  Receive Date: 20070327
  Receipt Date: 20070315
  Transmission Date: 20070707
  Serious: Yes (Hospitalization, Other)
  Sender: FDA-Public Use
  Company Number: US-PFIZER INC-2006125233

PATIENT

DRUGS (13)
  1. NEURONTIN [Suspect]
     Indication: CONVULSION
     Route: 048
     Dates: start: 20040101, end: 20040601
  2. NEURONTIN [Suspect]
     Indication: DEPRESSION
  3. DOSTINEX [Concomitant]
  4. KEPPRA [Concomitant]
     Route: 048
  5. PAXIL [Concomitant]
     Route: 048
  6. IBUPROFEN [Concomitant]
     Route: 048
  7. TRAMADOL HCL [Concomitant]
     Route: 048
  8. CARBAMAZEPINE [Concomitant]
     Route: 048
  9. ACIPHEX [Concomitant]
     Route: 048
  10. TRAZODONE HCL [Concomitant]
     Route: 048
  11. LEVOTHYROXINE SODIUM [Concomitant]
     Route: 048
  12. HYDROCORTISONE [Concomitant]
     Route: 048
  13. DEPO-TESTOSTERONE [Concomitant]

REACTIONS (5)
  - DRUG INEFFECTIVE [None]
  - GUN SHOT WOUND [None]
  - MOTOR DYSFUNCTION [None]
  - SENSORY LOSS [None]
  - SUICIDE ATTEMPT [None]
